FAERS Safety Report 24114717 (Version 1)
Quarter: 2024Q3

REPORT INFORMATION
  Report Type: Other
  Country: FR (occurrence: FR)
  Receive Date: 20240721
  Receipt Date: 20240721
  Transmission Date: 20241017
  Serious: Yes (Other)
  Sender: GE HEALTHCARE
  Company Number: None

PATIENT
  Age: 32 Year
  Sex: Female
  Weight: 60 kg

DRUGS (4)
  1. VISIPAQUE [Interacting]
     Active Substance: IODIXANOL
     Indication: Transcatheter arterial chemoembolisation
     Dosage: 100 ML, TOTAL
     Route: 042
     Dates: start: 20211221, end: 20211221
  2. VISIPAQUE [Interacting]
     Active Substance: IODIXANOL
     Dosage: 120 ML, TOTAL
     Route: 042
     Dates: start: 20220812, end: 20220812
  3. LIPIODOL ULTRA-FLUIDE [Interacting]
     Active Substance: ETHIODIZED OIL
     Indication: Transcatheter arterial chemoembolisation
     Dosage: 4 ML
     Route: 042
     Dates: start: 20211221, end: 20211221
  4. LIPIODOL ULTRA-FLUIDE [Interacting]
     Active Substance: ETHIODIZED OIL
     Dosage: 3 ML
     Route: 042
     Dates: start: 20220812, end: 20220812

REACTIONS (4)
  - Drug interaction [Not Recovered/Not Resolved]
  - Iodine overload [Not Recovered/Not Resolved]
  - Hyperthyroidism [Not Recovered/Not Resolved]
  - Urticaria [Recovered/Resolved]

NARRATIVE: CASE EVENT DATE: 20211221
